FAERS Safety Report 7613162-X (Version None)
Quarter: 2011Q3

REPORT INFORMATION
  Report Type: 
  Country: None (occurrence: None)
  Receive Date: 20110708
  Receipt Date: 20110624
  Transmission Date: 20111222
  Serious: Yes (Hospitalization, Other)
  Sender: FDA-Public Use
  Company Number: AUR-APL-2011-03773

PATIENT
  Age: 71 Year
  Sex: Female

DRUGS (8)
  1. ATORVASTATIN CALCIUM [Suspect]
     Indication: PRODUCT USED FOR UNKNOWN INDICATION
     Dosage: 30 MG (30 MG,3 IN 1 D),ORAL
     Route: 048
  2. DICYNONE (ETAMSILATE) [Suspect]
     Indication: PAIN
     Dosage: 1500 MG (500 MG,3 IN 1 D),ORAL
     Route: 048
     Dates: start: 20110202, end: 20110404
  3. LASIX [Suspect]
     Indication: OEDEMA PERIPHERAL
     Dosage: 1/4 TO 3/4 TABLET (500 MG,1 D),ORAL
     Route: 048
     Dates: start: 20100101
  4. LORAZEPAM [Suspect]
     Indication: PRODUCT USED FOR UNKNOWN INDICATION
     Dosage: 1 MG (1 MG,1 IN 1 D),ORAL
     Route: 048
  5. ESBERIVEN FORTE [Suspect]
     Indication: PRODUCT USED FOR UNKNOWN INDICATION
     Dosage: (2 IN 1 D),ORAL
     Route: 048
  6. GLYBURIDE [Suspect]
     Indication: TYPE 2 DIABETES MELLITUS
     Dosage: 5 MG (2.5 MG,2 IN 1 D),ORAL
     Route: 048
  7. ARIMIDEX [Suspect]
     Indication: BREAST CANCER
     Dosage: 1 MG (1 MG,1 IN 1 D),ORAL
     Route: 048
     Dates: start: 20051201, end: 20110509
  8. METFORMIN HCL [Suspect]
     Indication: TYPE 2 DIABETES MELLITUS
     Dosage: 3000 MG (1000 MG,3 IN 1 D),ORAL
     Route: 048

REACTIONS (9)
  - VASCULAR PURPURA [None]
  - ANAEMIA [None]
  - LEUKOCYTOCLASTIC VASCULITIS [None]
  - DYSPNOEA [None]
  - THROMBOCYTOPENIA [None]
  - CRYOGLOBULINAEMIA [None]
  - COMPLEMENT FACTOR C4 DECREASED [None]
  - HEPATITIS C [None]
  - ANTINUCLEAR ANTIBODY POSITIVE [None]
